FAERS Safety Report 18213190 (Version 1)
Quarter: 2020Q3

REPORT INFORMATION
  Report Type: Spontaneous
  Country: US (occurrence: US)
  Receive Date: 20200830
  Receipt Date: 20200830
  Transmission Date: 20201103
  Serious: Yes (Other)
  Sender: FDA-Public Use
  Company Number: None

PATIENT
  Age: 71 Year
  Sex: Male
  Weight: 73.8 kg

DRUGS (17)
  1. TURMERIC [Concomitant]
     Active Substance: HERBALS\TURMERIC
  2. FISH OIL [Concomitant]
     Active Substance: FISH OIL
  3. CPAP MACHINE [Concomitant]
  4. GINGER ROOT [Concomitant]
     Active Substance: GINGER
  5. K1 [Concomitant]
  6. HAWTHORN [Concomitant]
     Active Substance: CRATAEGUS LAEVIGATA FRUIT
  7. TEA [Concomitant]
     Active Substance: TEA LEAF
  8. MILK THISTLE [Concomitant]
     Active Substance: DIETARY SUPPLEMENT\HERBALS\MILK THISTLE
  9. CEFUROXIME. [Suspect]
     Active Substance: CEFUROXIME
     Indication: SINUSITIS
     Dosage: ?          QUANTITY:28 TABLET(S);?
     Route: 048
     Dates: start: 20200825, end: 20200829
  10. SIMVASTATIN. [Concomitant]
     Active Substance: SIMVASTATIN
  11. B1 [Concomitant]
  12. VITAMIN D3 [Concomitant]
     Active Substance: CHOLECALCIFEROL
  13. CALCIUM [Concomitant]
     Active Substance: CALCIUM
  14. VITAMIN B12 [Concomitant]
     Active Substance: CYANOCOBALAMIN
  15. MULTIVITAMINS [Concomitant]
     Active Substance: VITAMINS
  16. KELP [Concomitant]
     Active Substance: KELP
  17. OLIVE LEAF [Concomitant]

REACTIONS (7)
  - Rash erythematous [None]
  - Hypersensitivity [None]
  - Rash macular [None]
  - Penile swelling [None]
  - Pruritus genital [None]
  - Penis disorder [None]
  - Secretion discharge [None]

NARRATIVE: CASE EVENT DATE: 20200828
